FAERS Safety Report 5282308-3 (Version None)
Quarter: 2007Q1

REPORT INFORMATION
  Report Type: 
  Country: None (occurrence: None)
  Receive Date: 20070331
  Receipt Date: 20070323
  Transmission Date: 20070707
  Serious: Yes (Hospitalization)
  Sender: FDA-Public Use
  Company Number: GB-PFIZER INC-2007023869

PATIENT
  Age: 64 Year
  Sex: Male

DRUGS (1)
  1. SERTRALINE [Suspect]
     Route: 048
     Dates: start: 20060301, end: 20070306

REACTIONS (5)
  - ASTHENIA [None]
  - BALANCE DISORDER [None]
  - CONFUSIONAL STATE [None]
  - CONVULSION [None]
  - MUSCLE TWITCHING [None]
